FAERS Safety Report 6766950-6 (Version None)
Quarter: 2010Q2

REPORT INFORMATION
  Report Type: 
  Country: None (occurrence: None)
  Receive Date: 20100611
  Receipt Date: 20100604
  Transmission Date: 20101027
  Serious: Yes (Hospitalization)
  Sender: FDA-Public Use
  Company Number: IT-ABBOTT-10P-083-0647428-00

PATIENT
  Age: 46 Year
  Sex: Female

DRUGS (7)
  1. DEPAKENE [Suspect]
     Indication: DEPRESSION
     Dosage: 500MG ONCE
     Route: 048
     Dates: start: 20100318, end: 20100318
  2. RIVOTRIL [Suspect]
     Indication: DEPRESSION
     Dosage: 5 MG ONCE
     Route: 048
     Dates: start: 20100318, end: 20100318
  3. RIVOTRIL [Suspect]
     Route: 048
  4. VALIUM [Concomitant]
     Indication: DRUG USE FOR UNKNOWN INDICATION
     Dosage: PATIENT TOOK 1/3 VIAL AT ONCE
  5. ALCOHOL [Concomitant]
     Indication: DRUG USE FOR UNKNOWN INDICATION
     Dosage: THE PATIENT DRANK 1 LITRE OF WINE
  6. BENTELAN [Concomitant]
     Indication: DRUG USE FOR UNKNOWN INDICATION
     Dosage: 4MG OD
     Route: 048
  7. ESCITALOPRAM [Concomitant]
     Indication: DRUG USE FOR UNKNOWN INDICATION
     Dosage: 25MG OD
     Route: 048

REACTIONS (2)
  - MULTIPLE DRUG OVERDOSE [None]
  - VOMITING [None]
